FAERS Safety Report 9373338 (Version 1)
Quarter: 2013Q2

REPORT INFORMATION
  Report Type: Spontaneous
  Country: GB (occurrence: GB)
  Receive Date: 20130627
  Receipt Date: 20130627
  Transmission Date: 20140414
  Serious: Yes (Other)
  Sender: FDA-Public Use
  Company Number: GB-VIIV HEALTHCARE LIMITED-B0901661A

PATIENT
  Sex: Male

DRUGS (8)
  1. RETROVIR [Suspect]
     Indication: HIV INFECTION
     Route: 042
     Dates: start: 20130111
  2. RETROVIR [Suspect]
     Indication: HIV INFECTION
     Route: 048
     Dates: start: 201301, end: 201306
  3. LAMIVUDINE-HIV [Concomitant]
  4. NEVIRAPINE [Concomitant]
  5. ACICLOVIR [Concomitant]
  6. VANCOMYCIN [Concomitant]
  7. FLUCONAZOLE [Concomitant]
  8. CEFTAZIDIME [Concomitant]

REACTIONS (3)
  - Renal impairment [Not Recovered/Not Resolved]
  - Malaise [Not Recovered/Not Resolved]
  - Thrombosis [Not Recovered/Not Resolved]
